FAERS Safety Report 17791991 (Version 1)
Quarter: 2020Q2

REPORT INFORMATION
  Report Type: Spontaneous
  Country: US (occurrence: US)
  Receive Date: 20200515
  Receipt Date: 20200515
  Transmission Date: 20200714
  Serious: No
  Sender: FDA-Public Use
  Company Number: None

PATIENT
  Age: 13 Year
  Sex: Female
  Weight: 56.25 kg

DRUGS (2)
  1. CONCERTA [Concomitant]
     Active Substance: METHYLPHENIDATE HYDROCHLORIDE
  2. ST. IVES BLEMISH AND BLACKHEAD CONTROL APRICOT SCRUB [Suspect]
     Active Substance: SALICYLIC ACID
     Indication: PERSONAL HYGIENE
     Route: 061

REACTIONS (2)
  - Rash [None]
  - Rash pustular [None]

NARRATIVE: CASE EVENT DATE: 20100716
